FAERS Safety Report 8129605-1 (Version None)
Quarter: 2012Q1

REPORT INFORMATION
  Report Type: 
  Country: None (occurrence: None)
  Receive Date: 20120210
  Receipt Date: 20100118
  Transmission Date: 20120608
  Serious: Yes (Other)
  Sender: FDA-Public Use
  Company Number: JP-GLAXOSMITHKLINE-B0627413A

PATIENT
  Age: 29 Year
  Sex: Female

DRUGS (5)
  1. FLUVOXAMINE MALEATE [Concomitant]
     Indication: DEPRESSIVE SYMPTOM
     Dosage: 50MG PER DAY
     Route: 048
  2. ALPRAZOLAM [Concomitant]
     Indication: ANXIETY
     Dosage: 2.4MG PER DAY
     Route: 048
  3. PAXIL [Suspect]
     Dosage: 10MG PER DAY
     Route: 048
  4. PAXIL [Suspect]
     Indication: DEPRESSIVE SYMPTOM
     Dosage: 10MG PER DAY
     Route: 048
  5. PAXIL [Suspect]
     Dosage: 30MG PER DAY
     Route: 048

REACTIONS (11)
  - MUSCLE SPASMS [None]
  - EOSINOPHIL COUNT INCREASED [None]
  - INSOMNIA [None]
  - OEDEMA PERIPHERAL [None]
  - ARTHRALGIA [None]
  - MALAISE [None]
  - C-REACTIVE PROTEIN INCREASED [None]
  - HYPERVENTILATION [None]
  - WHITE BLOOD CELL COUNT INCREASED [None]
  - HYPEREOSINOPHILIC SYNDROME [None]
  - TREMOR [None]
